FAERS Safety Report 9280979 (Version 8)
Quarter: 2013Q4

REPORT INFORMATION
  Report Type: Report from Study
  Country: NL (occurrence: NL)
  Receive Date: 20130509
  Receipt Date: 20131202
  Transmission Date: 20140711
  Serious: Yes (Hospitalization)
  Sender: FDA-Public Use
  Company Number: NL-BAYER-2013-007139

PATIENT
  Age: 71 Year
  Sex: Male
  Weight: 77 kg

DRUGS (16)
  1. REGORAFENIB [Suspect]
     Indication: COLORECTAL CANCER METASTATIC
     Dosage: 160 MG, QD
     Route: 048
     Dates: start: 20121121, end: 20121205
  2. REGORAFENIB [Suspect]
     Indication: COLORECTAL CANCER METASTATIC
     Dosage: 160 MG, QD
     Route: 048
     Dates: start: 20121220, end: 20130102
  3. REGORAFENIB [Suspect]
     Indication: COLORECTAL CANCER METASTATIC
     Dosage: 160 MG, QD
     Route: 048
     Dates: start: 20130123, end: 20130210
  4. OMEPRAZOL [Concomitant]
     Indication: PROPHYLAXIS
     Dosage: 40 MG, TOTAL DAILY DOSE
     Route: 048
     Dates: start: 2012
  5. DEXAMETHASON [Concomitant]
     Dosage: TOTAL DAILY DOSE 2 MG
     Route: 048
     Dates: start: 20121227
  6. METOCLOPRAMIDE [Concomitant]
     Dosage: MAX. 60 MG TOTAL DAILY DOSE
     Route: 048
  7. AMLODIPINE [Concomitant]
     Indication: HYPERTENSION
     Dosage: TOTAL DAILY DOSE 5 MG
     Route: 048
     Dates: start: 20121205
  8. DOMPERIDON [Concomitant]
     Dosage: 30 MG, TOTAL DAILY DOSE
     Route: 048
     Dates: start: 20120927
  9. OXYCODON [Concomitant]
     Indication: HEADACHE
     Dosage: TOTAL DAILY DOSE 40 MG
     Route: 048
     Dates: start: 20120425
  10. OXYNORM [Concomitant]
     Indication: BACK PAIN
     Dosage: 40 MG, TOTAL DAILY DOSE
     Route: 048
     Dates: start: 20120718
  11. OXYNORM [Concomitant]
     Indication: ABDOMINAL PAIN
  12. INNOHEP [Concomitant]
     Indication: THROMBOSIS PROPHYLAXIS
     Dosage: 0.7 ML, TOTAL DAILY DOSE
     Route: 058
     Dates: start: 2012, end: 20130216
  13. PARACETAMOL [Concomitant]
     Indication: PAIN
     Dosage: 3000 MG, TOTAL DAILY DOSE
     Route: 048
     Dates: start: 2012
  14. PARACETAMOL [Concomitant]
     Indication: HEADACHE
  15. MOVICOLON [Concomitant]
     Indication: GASTROINTESTINAL MOTILITY DISORDER
  16. NADROPARIN CALCIUM [Concomitant]
     Indication: THROMBOSIS PROPHYLAXIS
     Dosage: 2850 IU, TOTAL DAILY DOSE
     Route: 058
     Dates: start: 20130114, end: 20130116

REACTIONS (3)
  - Pneumonia [Recovered/Resolved]
  - Metabolic acidosis [Recovered/Resolved]
  - Dyspnoea [Recovered/Resolved with Sequelae]
